FAERS Safety Report 23171562 (Version 1)
Quarter: 2023Q4

REPORT INFORMATION
  Report Type: Spontaneous
  Country: FR (occurrence: FR)
  Receive Date: 20231110
  Receipt Date: 20231110
  Transmission Date: 20240109
  Serious: Yes (Death, Congenital Anomaly, Other)
  Sender: FDA-Public Use
  Company Number: FR-SA-2022SA278547

PATIENT
  Age: 2 Month
  Sex: Male

DRUGS (2)
  1. HYDROCORTISONE [Suspect]
     Active Substance: HYDROCORTISONE
     Indication: Premature baby
     Dosage: DOSE DESCRIPTION : UNK
     Route: 065
     Dates: start: 20220516, end: 20220518
  2. INSULIN NOS [Suspect]
     Active Substance: INSULIN NOS
     Indication: Premature baby
     Route: 065
     Dates: start: 20220514, end: 20220515

REACTIONS (1)
  - Hypertrophic cardiomyopathy [Fatal]

NARRATIVE: CASE EVENT DATE: 20220518
